FAERS Safety Report 8329994-9 (Version None)
Quarter: 2012Q2

REPORT INFORMATION
  Report Type: 
  Country: None (occurrence: None)
  Receive Date: 20120502
  Receipt Date: 20120424
  Transmission Date: 20120825
  Serious: Yes (Other)
  Sender: FDA-Public Use
  Company Number: US-PFIZER INC-2012010967

PATIENT
  Sex: Female
  Weight: 64.399 kg

DRUGS (11)
  1. LOPRESSOR [Concomitant]
     Dosage: 100 MG, UNK
  2. ACETYLSALICYLIC ACID [Concomitant]
     Dosage: UNK MG, UNK
  3. SYNTHROID [Concomitant]
     Dosage: 0.25 MCG, UNK
  4. LORTAB [Concomitant]
     Indication: HEADACHE
     Dosage: 7.5/500 MG, UNK
  5. NEURONTIN [Suspect]
     Indication: HEADACHE
  6. NEURONTIN [Suspect]
     Indication: FIBROMYALGIA
  7. OMEGA 3 PLUS D3 FISH OIL [Concomitant]
     Dosage: UNK, 2X/DAY
  8. NEURONTIN [Suspect]
     Indication: MUSCLE SPASMS
     Dosage: 300 MG, 3X/DAY
     Route: 048
     Dates: start: 20110401
  9. HYDROCHLOROTHIAZIDE [Concomitant]
     Dosage: 25 MG, UNK
  10. PRAVACHOL [Concomitant]
     Dosage: 40 MG, UNK
  11. ZOLOFT [Concomitant]
     Dosage: UNK

REACTIONS (14)
  - SYNCOPE [None]
  - RHEUMATOID ARTHRITIS [None]
  - ALOPECIA [None]
  - HYPOAESTHESIA [None]
  - ANXIETY [None]
  - MEMORY IMPAIRMENT [None]
  - MONOPLEGIA [None]
  - INSOMNIA [None]
  - PAIN [None]
  - HEADACHE [None]
  - PAIN IN EXTREMITY [None]
  - STRESS [None]
  - BREAST CANCER [None]
  - OEDEMA [None]
